FAERS Safety Report 4313582-5 (Version None)
Quarter: 2004Q1

REPORT INFORMATION
  Report Type: 
  Country: None (occurrence: None)
  Receive Date: 20040304
  Receipt Date: 20040217
  Transmission Date: 20041129
  Serious: Yes (Hospitalization, Other)
  Sender: FDA-Public Use
  Company Number: USA040157723

PATIENT
  Age: 76 Year
  Sex: Female

DRUGS (4)
  1. EVISTA [Suspect]
     Indication: OSTEOPOROSIS
     Dates: start: 20010101
  2. SYNTHROID [Concomitant]
  3. ALLEGRA [Concomitant]
  4. ACTONEL [Concomitant]

REACTIONS (5)
  - FALL [None]
  - GASTRIC DISORDER [None]
  - HIP FRACTURE [None]
  - MEDICAL DEVICE REMOVAL [None]
  - SPINAL FRACTURE [None]
